FAERS Safety Report 9795259 (Version 2)
Quarter: 2014Q1

REPORT INFORMATION
  Report Type: Spontaneous
  Country: IT (occurrence: IT)
  Receive Date: 20140103
  Receipt Date: 20140218
  Transmission Date: 20141002
  Serious: Yes (Hospitalization)
  Sender: FDA-Public Use
  Company Number: IT-ROCHE-1328887

PATIENT
  Sex: Female

DRUGS (5)
  1. LUCENTIS [Suspect]
     Indication: MACULOPATHY
     Dosage: CYCLIC, (10MG/ML)
     Route: 050
     Dates: start: 20130806, end: 20130927
  2. ATENOLOL [Concomitant]
     Route: 065
  3. CARDIOASPIRIN [Concomitant]
  4. VASCOMAN [Concomitant]
  5. LASIX [Concomitant]

REACTIONS (1)
  - Transient ischaemic attack [Recovered/Resolved]
